FAERS Safety Report 6243090-6 (Version None)
Quarter: 2009Q2

REPORT INFORMATION
  Report Type: 
  Country: None (occurrence: None)
  Receive Date: 20090617
  Receipt Date: 20080515
  Transmission Date: 20091009
  Serious: No
  Sender: FDA-Public Use
  Company Number: 275388

PATIENT
  Age: 3 Year
  Sex: Female

DRUGS (2)
  1. LEVEMIR [Suspect]
     Indication: TYPE 1 DIABETES MELLITUS
     Dates: start: 20080507
  2. NOVOLOG [Suspect]
     Indication: TYPE 1 DIABETES MELLITUS
     Dates: start: 20080507

REACTIONS (2)
  - GAIT DISTURBANCE [None]
  - WEIGHT BEARING DIFFICULTY [None]
